FAERS Safety Report 4780605-9 (Version None)
Quarter: 2005Q3

REPORT INFORMATION
  Report Type: 
  Country: None (occurrence: None)
  Receive Date: 20050926
  Receipt Date: 20050915
  Transmission Date: 20060218
  Serious: Yes (Hospitalization)
  Sender: FDA-Public Use
  Company Number: 200508084

PATIENT
  Age: 65 Year
  Sex: Female
  Weight: 95.2554 kg

DRUGS (10)
  1. BOTOX PURIFIED NEUROTOXIN COMPLEX [Suspect]
     Indication: DYSKINESIA
     Dates: start: 20000705, end: 20050707
  2. BOTOX PURIFIED NEUROTOXIN COMPLEX [Suspect]
     Indication: DYSKINESIA
  3. BOTOX PURIFIED NEUROTOXIN COMPLEX [Suspect]
     Indication: DYSKINESIA
     Dosage: 60 UNITS ONCE IM
     Route: 030
     Dates: start: 20050707, end: 20050707
  4. PLENDIL [Concomitant]
  5. KLONOPIN [Concomitant]
  6. BACLOFEN [Concomitant]
  7. HYDROCHLOROTHIAZIDE [Concomitant]
  8. DETROL LA [Concomitant]
  9. VITAMINS [Concomitant]
  10. POTASSIUM [Concomitant]

REACTIONS (15)
  - ASTHENIA [None]
  - BLOOD CHOLESTEROL INCREASED [None]
  - BLOOD POTASSIUM DECREASED [None]
  - DIZZINESS [None]
  - DRUG EFFECT DECREASED [None]
  - EPISTAXIS [None]
  - FATIGUE [None]
  - HAEMORRHAGE [None]
  - HEADACHE [None]
  - NAUSEA [None]
  - PAIN IN EXTREMITY [None]
  - PALPITATIONS [None]
  - PARAESTHESIA [None]
  - PROTEIN TOTAL INCREASED [None]
  - STRESS [None]
